FAERS Safety Report 24293428 (Version 1)
Quarter: 2024Q3

REPORT INFORMATION
  Report Type: Spontaneous
  Country: US (occurrence: None)
  Receive Date: 20240906
  Receipt Date: 20240906
  Transmission Date: 20241017
  Serious: No
  Sender: DOMPE FARMACEUTICI
  Company Number: US-FARMAPROD-202308-202401-0138

PATIENT
  Sex: Female

DRUGS (13)
  1. OXERVATE [Suspect]
     Active Substance: CENEGERMIN-BKBJ
     Indication: Neurotrophic keratopathy
     Route: 047
     Dates: start: 20240104
  2. MIEBO [Concomitant]
     Active Substance: PERFLUOROHEXYLOCTANE
  3. TYRVAYA [Concomitant]
     Active Substance: VARENICLINE TARTRATE
  4. VIMPAT [Concomitant]
     Active Substance: LACOSAMIDE
  5. LATANOPROST [Concomitant]
     Active Substance: LATANOPROST
  6. LEVOTHYROXINE SODIUM [Concomitant]
     Active Substance: LEVOTHYROXINE SODIUM
  7. CYMBALTA [Concomitant]
     Active Substance: DULOXETINE HYDROCHLORIDE
  8. CLARITIN-D NOS [Concomitant]
     Active Substance: LORATADINE\PSEUDOEPHEDRINE SULFATE
  9. UBRELVY [Concomitant]
     Active Substance: UBROGEPANT
  10. ARMOUR THYROID [Concomitant]
     Active Substance: THYROID, PORCINE
  11. TESTOSTERONE [Concomitant]
     Active Substance: TESTOSTERONE
  12. PROGESTERONE [Concomitant]
     Active Substance: PROGESTERONE
  13. SUNOSI [Concomitant]
     Active Substance: SOLRIAMFETOL

REACTIONS (2)
  - Eye pain [Unknown]
  - Product administration error [Unknown]
